FAERS Safety Report 9012482 (Version 1)
Quarter: 2013Q1

REPORT INFORMATION
  Report Type: Spontaneous
  Country: US (occurrence: US)
  Receive Date: 20130114
  Receipt Date: 20130114
  Transmission Date: 20140127
  Serious: Yes (Other)
  Sender: FDA-Public Use
  Company Number: US-BAYER-2013-003632

PATIENT
  Age: 22 Year
  Sex: Female
  Weight: 58.96 kg

DRUGS (2)
  1. ALKA-SELTZER PLUS COLD + COUGH [Suspect]
     Indication: NASOPHARYNGITIS
  2. ORAL CONTRACEPTIVE NOS [Concomitant]

REACTIONS (1)
  - Urinary tract infection [Recovered/Resolved]
